FAERS Safety Report 13250798 (Version 1)
Quarter: 2017Q1

REPORT INFORMATION
  Report Type: Report from Study
  Country: JP (occurrence: JP)
  Receive Date: 20170220
  Receipt Date: 20170220
  Transmission Date: 20170428
  Serious: Yes (Other)
  Sender: FDA-Public Use
  Company Number: JP-BRISTOL-MYERS SQUIBB COMPANY-BMS-2016-016969

PATIENT
  Age: 41 Year
  Sex: Female

DRUGS (1)
  1. NIVOLUMAB [Suspect]
     Active Substance: NIVOLUMAB
     Indication: NON-SMALL CELL LUNG CANCER
     Dosage: 3 MG/KG, UNK
     Route: 065
     Dates: start: 20160127, end: 20160127

REACTIONS (2)
  - Hyperthyroidism [Not Recovered/Not Resolved]
  - Thyroid disorder [Recovered/Resolved]

NARRATIVE: CASE EVENT DATE: 20160210
